FAERS Safety Report 18596597 (Version 4)
Quarter: 2022Q4

REPORT INFORMATION
  Report Type: Spontaneous
  Country: GB (occurrence: GB)
  Receive Date: 20201209
  Receipt Date: 20221129
  Transmission Date: 20230112
  Serious: Yes (Life-Threatening, Hospitalization, Other)
  Sender: FDA-Public Use
  Company Number: GB-ACTAVIS-066645

PATIENT
  Age: 11 Year
  Sex: Male

DRUGS (20)
  1. ZONISAMIDE [Suspect]
     Active Substance: ZONISAMIDE
     Indication: Myoclonic epilepsy
     Dosage: 100 MG, QD(SLOWLY INCREASE THEDOSE TO 150MG TWICE)
     Route: 065
     Dates: start: 201912, end: 20200127
  2. ZONISAMIDE [Suspect]
     Active Substance: ZONISAMIDE
     Indication: Seizure
     Dosage: 200 MILLIGRAM, QD (100 MILLIGRAM, BID)
     Route: 048
     Dates: start: 201912, end: 20200127
  3. ZONISAMIDE [Suspect]
     Active Substance: ZONISAMIDE
     Indication: Epilepsy
     Dosage: 150 MILLIGRAM, QD (SLOWLY INCREASE THE DOSE)
     Route: 065
     Dates: start: 20200108
  4. ZONISAMIDE [Suspect]
     Active Substance: ZONISAMIDE
     Dosage: 300 MILLIGRAM, QD, (150 MG, BID (INCREASE))
     Route: 048
     Dates: start: 20200108
  5. CARBAMAZEPINE [Suspect]
     Active Substance: CARBAMAZEPINE
     Indication: Product used for unknown indication
     Dosage: UNK
     Route: 065
  6. RUFINAMIDE [Concomitant]
     Active Substance: RUFINAMIDE
     Indication: Drop attacks
     Dosage: UNK
     Route: 065
     Dates: start: 2020, end: 2020
  7. VALPROATE SODIUM [Concomitant]
     Active Substance: VALPROATE SODIUM
     Indication: Myoclonic epilepsy
     Dosage: 600 MG, QD(TWICE A DAY, RESTARTED AT A LOWER DOSE)
     Route: 065
     Dates: start: 201908, end: 2020
  8. VALPROATE SODIUM [Concomitant]
     Active Substance: VALPROATE SODIUM
     Indication: Seizure
     Dosage: 1200 MILLIGRAM, QD (600 MILLIGRAM, BID)
     Route: 048
     Dates: start: 201908, end: 2020
  9. VALPROATE SODIUM [Concomitant]
     Active Substance: VALPROATE SODIUM
     Indication: Epilepsy
     Dosage: LOWER DOSE
     Route: 065
     Dates: start: 202002
  10. LEVETIRACETAM [Concomitant]
     Active Substance: LEVETIRACETAM
     Indication: Myoclonic epilepsy
     Dosage: 900 MILLIGRAM, QD (TWICE A DAY, RESTARTED)
     Route: 065
     Dates: start: 201905, end: 2020
  11. LEVETIRACETAM [Concomitant]
     Active Substance: LEVETIRACETAM
     Indication: Epilepsy
     Dosage: 1800 MILLIGRAM, QD (900 MILLIGRAM, BID)
     Route: 048
     Dates: start: 201905, end: 2020
  12. LEVETIRACETAM [Concomitant]
     Active Substance: LEVETIRACETAM
     Indication: Seizure
     Dosage: UNK
     Route: 048
     Dates: start: 202002
  13. CLOBAZAM [Concomitant]
     Active Substance: CLOBAZAM
     Indication: Myoclonic epilepsy
     Dosage: 35 MG QD, 10 MG IN MORNING 15 MG IN EVE
     Route: 065
     Dates: start: 2017
  14. CLOBAZAM [Concomitant]
     Active Substance: CLOBAZAM
     Indication: Seizure
     Dosage: 100MG, QD, 10 MG, QD (10 MG IN AM AND 15 MG IN PM)
     Route: 048
     Dates: start: 2017
  15. CLOBAZAM [Concomitant]
     Active Substance: CLOBAZAM
     Indication: Epilepsy
     Dosage: 10 MILLIGRAM, QD (IN THE MORNING)
     Route: 065
     Dates: start: 2020
  16. CLOBAZAM [Concomitant]
     Active Substance: CLOBAZAM
     Dosage: 15 MG, QD (10 MG IN AM AND 15 MG IN PM)
     Route: 048
     Dates: start: 2020
  17. CLOBAZAM [Concomitant]
     Active Substance: CLOBAZAM
     Dosage: DOSE INCREASE
     Route: 048
     Dates: start: 2020, end: 202002
  18. CLOBAZAM [Concomitant]
     Active Substance: CLOBAZAM
     Dosage: UNK
     Route: 048
     Dates: start: 202002
  19. CLOBAZAM [Concomitant]
     Active Substance: CLOBAZAM
     Dosage: 15 MILLIGRAM, QD (IN THE EVENING)
     Route: 065
  20. CLOBAZAM [Concomitant]
     Active Substance: CLOBAZAM
     Dosage: 10 MILLIGRAM, QD (IN THE MORNING)
     Route: 065

REACTIONS (2)
  - Respiratory distress [Recovered/Resolved]
  - Drug reaction with eosinophilia and systemic symptoms [Recovered/Resolved]

NARRATIVE: CASE EVENT DATE: 20200101
